FAERS Safety Report 7994320-1 (Version None)
Quarter: 2011Q4

REPORT INFORMATION
  Report Type: 
  Country: None (occurrence: None)
  Receive Date: 20111217
  Receipt Date: 20111217
  Transmission Date: 20120403
  Serious: Yes (Hospitalization)
  Sender: FDA-Public Use
  Company Number: None

PATIENT
  Age: 47 Year
  Sex: Male
  Weight: 61.6 kg

DRUGS (2)
  1. QUETIAPINE [Suspect]
     Indication: AFFECTIVE DISORDER
     Dosage: 100 MG AT BEDTIME PO
     Route: 048
     Dates: start: 20110607, end: 20110805
  2. QUETIAPINE [Suspect]
     Indication: SLEEP DISORDER
     Dosage: 100 MG AT BEDTIME PO
     Route: 048
     Dates: start: 20110607, end: 20110805

REACTIONS (1)
  - HYPERGLYCAEMIA [None]
